FAERS Safety Report 7775665-7 (Version None)
Quarter: 2011Q3

REPORT INFORMATION
  Report Type: 
  Country: None (occurrence: None)
  Receive Date: 20110923
  Receipt Date: 20110921
  Transmission Date: 20111222
  Serious: Yes (Hospitalization)
  Sender: FDA-Public Use
  Company Number: US-GLAXOSMITHKLINE-A0928122A

PATIENT
  Age: 55 Year
  Sex: Female
  Weight: 105.4 kg

DRUGS (5)
  1. TRASTUZUMAB [Suspect]
     Indication: BREAST CANCER
     Dosage: 2MGK CYCLIC
     Route: 042
     Dates: start: 20110405
  2. DOCETAXEL [Suspect]
     Indication: BREAST CANCER
     Dosage: 75MGM2 CYCLIC
     Route: 042
     Dates: start: 20110405
  3. CARBOPLATIN [Suspect]
     Indication: BREAST CANCER
     Dosage: 6MGML CYCLIC
     Route: 042
     Dates: start: 20110405
  4. NEULASTA [Concomitant]
  5. LAPATINIB [Suspect]
     Indication: BREAST CANCER
     Dosage: 750MG PER DAY
     Route: 048
     Dates: start: 20110405

REACTIONS (1)
  - CELLULITIS [None]
